FAERS Safety Report 15050536 (Version 2)
Quarter: 2018Q2

REPORT INFORMATION
  Report Type: Report from Study
  Country: US (occurrence: US)
  Receive Date: 20180622
  Receipt Date: 20180627
  Transmission Date: 20180711
  Serious: Yes (Hospitalization, Other)
  Sender: FDA-Public Use
  Company Number: US-GILEAD-2018-0346342

PATIENT
  Age: 76 Year
  Sex: Female

DRUGS (2)
  1. TYVASO [Concomitant]
     Active Substance: TREPROSTINIL
  2. AMBRISENTAN [Suspect]
     Active Substance: AMBRISENTAN
     Indication: PRODUCT USED FOR UNKNOWN INDICATION
     Dosage: 10 MG, QD
     Route: 065
     Dates: start: 20180122

REACTIONS (6)
  - Dyspnoea [Unknown]
  - Ill-defined disorder [Unknown]
  - Cystitis [Unknown]
  - Sepsis [Unknown]
  - Pneumothorax [Unknown]
  - Pyrexia [Unknown]
